FAERS Safety Report 7319385-1 (Version None)
Quarter: 2011Q1

REPORT INFORMATION
  Report Type: 
  Country: None (occurrence: None)
  Receive Date: 20110216
  Receipt Date: 20110131
  Transmission Date: 20110831
  Serious: Yes (Life-Threatening, Hospitalization)
  Sender: FDA-Public Use
  Company Number: 2011CP000019

PATIENT
  Age: 68 Year
  Sex: Male

DRUGS (10)
  1. CIPROFLOXACIN HCL [Suspect]
     Indication: INFECTION
     Dosage: 500 MG;2/1 DAY;PO
     Route: 048
     Dates: start: 20061106, end: 20061109
  2. LORAZEPAM [Concomitant]
  3. FLUCONAZOLE [Suspect]
     Indication: INFECTION
     Dosage: 1 DAY;IV
     Route: 042
     Dates: start: 20061106, end: 20061109
  4. ZALDIAR [Concomitant]
  5. PERFALGAN (PARACETAMOL) [Suspect]
     Dosage: 1 GM;1 DAY;IV
     Route: 042
     Dates: start: 20061106, end: 20061107
  6. ETHYOL [Suspect]
     Dosage: 340 MG;1/3 WK;IV
     Route: 042
     Dates: start: 20060928, end: 20061106
  7. AMOXICILLIN W/CLAVULANIC ACID (AMOXI-CLAVULANICO) [Suspect]
     Indication: INFECTION
     Dosage: 3 GM;1 DAY;IV
     Route: 042
     Dates: start: 20061106, end: 20061109
  8. CITALOPRAM HYDROBROMIDE [Concomitant]
  9. PRIMPERAN INJ [Suspect]
     Dosage: 10 MG;6/1 DAY;IV
     Route: 042
     Dates: start: 20061106
  10. ACETAMINOPHEN [Concomitant]

REACTIONS (31)
  - TOXIC EPIDERMAL NECROLYSIS [None]
  - HYPOTENSION [None]
  - RESPIRATORY DISTRESS [None]
  - FALL [None]
  - DISTURBANCE IN ATTENTION [None]
  - PERIPHERAL CIRCULATORY FAILURE [None]
  - SYMBLEPHARON [None]
  - KERATITIS [None]
  - PYREXIA [None]
  - ERYTHEMA [None]
  - HISTIOCYTOSIS HAEMATOPHAGIC [None]
  - TYMPANIC MEMBRANE PERFORATION [None]
  - DEVICE RELATED INFECTION [None]
  - RADIATION SKIN INJURY [None]
  - DYSPHAGIA [None]
  - MUCOSAL INFLAMMATION [None]
  - LEUKOPENIA [None]
  - HEAD INJURY [None]
  - OTITIS MEDIA ACUTE [None]
  - SEPTIC SHOCK [None]
  - MALAISE [None]
  - OLIGURIA [None]
  - CONJUNCTIVAL OEDEMA [None]
  - HYPOTHERMIA [None]
  - HAEMODYNAMIC INSTABILITY [None]
  - SERRATIA INFECTION [None]
  - LUNG DISORDER [None]
  - SOMNOLENCE [None]
  - AGRANULOCYTOSIS [None]
  - EYELID FUNCTION DISORDER [None]
  - IRIS ADHESIONS [None]
